FAERS Safety Report 25984050 (Version 1)
Quarter: 2025Q4

REPORT INFORMATION
  Report Type: Spontaneous
  Country: CN (occurrence: CN)
  Receive Date: 20251031
  Receipt Date: 20251031
  Transmission Date: 20260118
  Serious: Yes (Other)
  Sender: ELI LILLY AND COMPANY
  Company Number: CN-ELI_LILLY_AND_COMPANY-CN202510033595

PATIENT
  Age: 59 Year
  Sex: Female

DRUGS (2)
  1. GEMCITABINE HYDROCHLORIDE [Suspect]
     Active Substance: GEMCITABINE HYDROCHLORIDE
     Indication: Gallbladder cancer stage IV
     Dosage: 1000 MG/M2, CYCLICAL
     Route: 065
     Dates: start: 20200402
  2. CISPLATIN [Suspect]
     Active Substance: CISPLATIN
     Indication: Gallbladder cancer stage IV
     Dosage: 25 MG/M2, CYCLICAL
     Route: 065
     Dates: start: 20200402

REACTIONS (2)
  - Gastrointestinal obstruction [Recovered/Resolved]
  - Stevens-Johnson syndrome [Recovered/Resolved]
